FAERS Safety Report 5708494-6 (Version None)
Quarter: 2008Q2

REPORT INFORMATION
  Report Type: 
  Country: None (occurrence: None)
  Receive Date: 20080417
  Receipt Date: 20080411
  Transmission Date: 20081010
  Serious: Yes (Other)
  Sender: FDA-Public Use
  Company Number: AU-ASTRAZENECA-2008AP01731

PATIENT
  Age: 36 Year
  Sex: Female
  Weight: 68 kg

DRUGS (4)
  1. SEROQUEL [Suspect]
     Indication: MOOD ALTERED
     Route: 048
     Dates: start: 20050801
  2. TEGRETOL [Concomitant]
  3. VALPROIC ACID [Concomitant]
     Dates: end: 20040301
  4. PROTHIADEN [Concomitant]
     Indication: DEPRESSION
     Dates: start: 20010101

REACTIONS (1)
  - ALOPECIA [None]
